FAERS Safety Report 8547749 (Version 8)
Quarter: 2014Q2

REPORT INFORMATION
  Report Type: Spontaneous
  Country: US (occurrence: US)
  Receive Date: 20120504
  Receipt Date: 20140507
  Transmission Date: 20141212
  Serious: Yes (Hospitalization, Disabling)
  Sender: FDA-Public Use
  Company Number: US-B.I. PHARMACEUTICALS,INC./RIDGEFIELD-2012-BP-09840BP

PATIENT
  Age: 85 Year
  Sex: Male
  Weight: 63.96 kg

DRUGS (16)
  1. LIPITOR [Concomitant]
     Route: 065
  2. PRADAXA [Suspect]
     Indication: ATRIAL FIBRILLATION
     Dosage: 300 MG
     Route: 065
     Dates: start: 20110118
  3. CARVEDILOL [Concomitant]
     Route: 065
  4. ISOSORBIDE [Concomitant]
     Route: 065
  5. LUMIGAN [Concomitant]
     Route: 065
  6. RAMIPRIL [Concomitant]
     Route: 065
  7. PILOCARPINE [Concomitant]
     Route: 065
  8. GLIPIZIDE [Concomitant]
     Route: 065
  9. AZOPT [Concomitant]
     Route: 065
  10. OMACOR [Concomitant]
     Route: 065
  11. IRON [Concomitant]
     Route: 065
  12. BUMETANIDE [Concomitant]
     Route: 065
  13. VITAMIN D [Concomitant]
     Route: 065
  14. AMBIEN [Concomitant]
     Route: 065
  15. FAMOTIDINE [Concomitant]
     Route: 065
  16. ZETIA [Concomitant]
     Route: 065

REACTIONS (3)
  - Haemorrhage [Unknown]
  - Gastrointestinal haemorrhage [Unknown]
  - Anaemia [Unknown]
